FAERS Safety Report 14629767 (Version 2)
Quarter: 2018Q4

REPORT INFORMATION
  Report Type: Spontaneous
  Country: FR (occurrence: FR)
  Receive Date: 20180313
  Receipt Date: 20181023
  Transmission Date: 20190204
  Serious: Yes (Other)
  Sender: FDA-Public Use
  Company Number: FR-MERCK KGAA-2043602

PATIENT
  Age: 37 Year
  Sex: Female

DRUGS (4)
  1. LEVOTHYROX NF [Suspect]
     Active Substance: LEVOTHYROXINE SODIUM
     Dates: start: 2017
  2. LEVOTHYROX NF [Suspect]
     Active Substance: LEVOTHYROXINE SODIUM
     Dates: start: 2017
  3. EUTHYROX [Suspect]
     Active Substance: LEVOTHYROXINE SODIUM
     Indication: POST PROCEDURAL HYPOTHYROIDISM
     Dates: start: 2017
  4. LEVOTHYROX NF [Suspect]
     Active Substance: LEVOTHYROXINE SODIUM
     Dates: start: 2017

REACTIONS (21)
  - Hypothyroidism [None]
  - Alopecia [None]
  - Apathy [None]
  - Blood thyroid stimulating hormone abnormal [None]
  - Social avoidant behaviour [None]
  - Sjogren^s syndrome [None]
  - Loss of personal independence in daily activities [None]
  - Weight increased [None]
  - Migraine [None]
  - Asthenia [None]
  - Headache [None]
  - Arthralgia [None]
  - Fatigue [None]
  - Dry eye [None]
  - Insomnia [None]
  - Anxiety [None]
  - Hyperthyroidism [None]
  - Dysstasia [None]
  - Impaired work ability [None]
  - Myalgia [None]
  - Depressed mood [None]

NARRATIVE: CASE EVENT DATE: 20170829
